FAERS Safety Report 15172970 (Version 2)
Quarter: 2018Q3

REPORT INFORMATION
  Report Type: Spontaneous
  Country: US (occurrence: US)
  Receive Date: 20180720
  Receipt Date: 20180809
  Transmission Date: 20181010
  Serious: Yes (Hospitalization, Other)
  Sender: FDA-Public Use
  Company Number: US-PRINSTON PHARMACEUTICAL INC.-2018PRN00382

PATIENT
  Age: 64 Year
  Sex: Male
  Weight: 69.84 kg

DRUGS (11)
  1. ERIVEDGE [Suspect]
     Active Substance: VISMODEGIB
     Indication: BASAL CELL CARCINOMA
     Dosage: UNK
     Route: 048
     Dates: start: 201710, end: 201803
  2. LOVAZA [Concomitant]
     Active Substance: OMEGA-3-ACID ETHYL ESTERS
  3. FLAX SEED [Concomitant]
     Active Substance: FLAX SEED
  4. BABY ASPIRIN [Concomitant]
     Active Substance: ASPIRIN
  5. METOPROLOL. [Concomitant]
     Active Substance: METOPROLOL
  6. CRANBERRY. [Concomitant]
     Active Substance: CRANBERRY
  7. FOLIC ACID. [Concomitant]
     Active Substance: FOLIC ACID
  8. GLUCOSAMINE [Concomitant]
     Active Substance: GLUCOSAMINE
  9. VALSARTAN. [Suspect]
     Active Substance: VALSARTAN
     Indication: HYPERTENSION
     Dosage: 80 MG, 1X/DAY
     Route: 048
  10. VITAMIN B [Concomitant]
     Active Substance: VITAMIN B
  11. DUTASTERIDE. [Concomitant]
     Active Substance: DUTASTERIDE

REACTIONS (8)
  - Malignant melanoma in situ [Recovered/Resolved]
  - Cancer surgery [Recovered/Resolved]
  - Skin graft [Recovered/Resolved]
  - Madarosis [Unknown]
  - Bowen^s disease [Recovered/Resolved]
  - Skin neoplasm excision [Recovered/Resolved]
  - Basal cell carcinoma [Recovered/Resolved]
  - Alopecia [Unknown]

NARRATIVE: CASE EVENT DATE: 200611
